FAERS Safety Report 9256420 (Version 1)
Quarter: 2013Q2

REPORT INFORMATION
  Report Type: Spontaneous
  Country: US (occurrence: US)
  Receive Date: 20130426
  Receipt Date: 20130426
  Transmission Date: 20140414
  Serious: Yes (Hospitalization)
  Sender: FDA-Public Use
  Company Number: US-ROCHE-1216212

PATIENT
  Age: 75 Year
  Sex: Male

DRUGS (4)
  1. XELODA [Suspect]
     Indication: RECTAL CANCER
     Route: 048
  2. XELODA [Suspect]
     Indication: ANAL CANCER
     Route: 048
     Dates: start: 20130408, end: 20130416
  3. CARVEDILOL [Concomitant]
     Indication: CARDIAC FAILURE CONGESTIVE
     Route: 048
     Dates: start: 20120910
  4. LISINOPRIL [Concomitant]
     Indication: CARDIAC FAILURE CONGESTIVE
     Route: 048
     Dates: start: 20120910, end: 20130415

REACTIONS (8)
  - Mucosal inflammation [Not Recovered/Not Resolved]
  - Neutropenia [Recovered/Resolved]
  - Dermatitis [Not Recovered/Not Resolved]
  - Palmar-plantar erythrodysaesthesia syndrome [Not Recovered/Not Resolved]
  - Skin discolouration [Not Recovered/Not Resolved]
  - Skin discolouration [Not Recovered/Not Resolved]
  - Scrotal disorder [Not Recovered/Not Resolved]
  - Stomatitis [Not Recovered/Not Resolved]
